FAERS Safety Report 23698132 (Version 1)
Quarter: 2024Q2

REPORT INFORMATION
  Report Type: Report from Study
  Country: US (occurrence: None)
  Receive Date: 20240402
  Receipt Date: 20240402
  Transmission Date: 20240715
  Serious: Yes (Hospitalization)
  Sender: FDA-Public Use
  Company Number: 2024A077715

PATIENT
  Sex: Female

DRUGS (11)
  1. TAGRISSO [Suspect]
     Active Substance: OSIMERTINIB
     Indication: Lung carcinoma cell type unspecified stage I
     Dosage: TAKE ONE TABLET BY MOUTH ONCE DAILY AT THE SAME TIME. MAY TAKE WITH OR WITHOUT FOOD.
     Route: 048
  2. VALACYCLOVIR [Concomitant]
     Active Substance: VALACYCLOVIR HYDROCHLORIDE
  3. ACETAMINOPHE [Concomitant]
  4. ALBUTEROL SU AER [Concomitant]
     Dosage: 108 (90, HAIR/SKIN/NA
  5. ONDANSETRON [Concomitant]
     Active Substance: ONDANSETRON
  6. PROCHLORPERA [Concomitant]
  7. TRELEGY ELLI AEP [Concomitant]
     Dosage: 200-62.5
  8. VITAMIN D [Concomitant]
     Active Substance: VITAMIN D NOS
     Dosage: 50 MCG (2000
  9. ELIQUIS [Concomitant]
     Active Substance: APIXABAN
  10. FUROSEMIDE [Concomitant]
     Active Substance: FUROSEMIDE
  11. WEGOVY SOA [Concomitant]
     Dosage: 0.25 MGL/0.5 ML

REACTIONS (1)
  - Haematuria [Not Recovered/Not Resolved]
